FAERS Safety Report 22084357 (Version 1)
Quarter: 2023Q1

REPORT INFORMATION
  Report Type: Spontaneous
  Country: US (occurrence: US)
  Receive Date: 20230310
  Receipt Date: 20230310
  Transmission Date: 20230418
  Serious: No
  Sender: FDA-Public Use
  Company Number: US-NIPPON SHINYAKU-NIP-2022-000065

PATIENT
  Age: 12 Year
  Sex: Male

DRUGS (1)
  1. VILTOLARSEN [Suspect]
     Active Substance: VILTOLARSEN
     Indication: Duchenne muscular dystrophy
     Dosage: 1840 MILLIGRAM, QWK
     Route: 042
     Dates: start: 2022

REACTIONS (2)
  - Pyrexia [Unknown]
  - Heart rate increased [Unknown]

NARRATIVE: CASE EVENT DATE: 20221118
